FAERS Safety Report 6766909-9 (Version None)
Quarter: 2010Q2

REPORT INFORMATION
  Report Type: 
  Country: None (occurrence: None)
  Receive Date: 20100609
  Receipt Date: 20100525
  Transmission Date: 20101027
  Serious: Yes (Hospitalization, Other)
  Sender: FDA-Public Use
  Company Number: 1000014266

PATIENT
  Age: 26 Year
  Sex: Female

DRUGS (2)
  1. ESCITALOPRAM OXALATE [Suspect]
     Indication: BIPOLAR DISORDER
  2. LAMOTRIGINE [Suspect]
     Indication: BIPOLAR DISORDER

REACTIONS (6)
  - ARTHRALGIA [None]
  - DRUG RASH WITH EOSINOPHILIA AND SYSTEMIC SYMPTOMS [None]
  - GENERAL PHYSICAL HEALTH DETERIORATION [None]
  - HUMAN HERPESVIRUS 6 INFECTION [None]
  - MYALGIA [None]
  - NAUSEA [None]
